FAERS Safety Report 25392687 (Version 3)
Quarter: 2025Q2

REPORT INFORMATION
  Report Type: Spontaneous
  Country: JP (occurrence: JP)
  Receive Date: 20250603
  Receipt Date: 20250624
  Transmission Date: 20250716
  Serious: Yes (Hospitalization, Other)
  Sender: ARGENX BVBA
  Company Number: JP-ARGENX-2025-ARGX-JP006892

PATIENT

DRUGS (29)
  1. VYVGART [Suspect]
     Active Substance: EFGARTIGIMOD ALFA-FCAB
     Indication: Myasthenia gravis
     Route: 042
     Dates: start: 20220607
  2. VYVGART [Suspect]
     Active Substance: EFGARTIGIMOD ALFA-FCAB
     Route: 042
  3. VYVGART [Suspect]
     Active Substance: EFGARTIGIMOD ALFA-FCAB
     Route: 042
  4. VYVGART [Suspect]
     Active Substance: EFGARTIGIMOD ALFA-FCAB
     Route: 042
  5. VYVGART [Suspect]
     Active Substance: EFGARTIGIMOD ALFA-FCAB
     Route: 042
  6. VYVGART [Suspect]
     Active Substance: EFGARTIGIMOD ALFA-FCAB
     Route: 042
  7. VYVGART [Suspect]
     Active Substance: EFGARTIGIMOD ALFA-FCAB
     Route: 042
  8. VYVGART [Suspect]
     Active Substance: EFGARTIGIMOD ALFA-FCAB
     Route: 042
  9. VYVGART [Suspect]
     Active Substance: EFGARTIGIMOD ALFA-FCAB
     Route: 042
  10. VYVGART [Suspect]
     Active Substance: EFGARTIGIMOD ALFA-FCAB
     Route: 042
  11. VYVGART [Suspect]
     Active Substance: EFGARTIGIMOD ALFA-FCAB
     Route: 042
  12. VYVGART [Suspect]
     Active Substance: EFGARTIGIMOD ALFA-FCAB
     Route: 042
  13. VYVGART [Suspect]
     Active Substance: EFGARTIGIMOD ALFA-FCAB
     Route: 042
  14. VYVGART [Suspect]
     Active Substance: EFGARTIGIMOD ALFA-FCAB
     Route: 042
  15. VYVGART [Suspect]
     Active Substance: EFGARTIGIMOD ALFA-FCAB
     Route: 042
  16. VYVGART [Suspect]
     Active Substance: EFGARTIGIMOD ALFA-FCAB
     Route: 042
  17. VYVGART [Suspect]
     Active Substance: EFGARTIGIMOD ALFA-FCAB
     Route: 042
  18. PREDNISOLONE [Concomitant]
     Active Substance: PREDNISOLONE
     Indication: Myasthenia gravis
     Route: 048
  19. PREDNISOLONE [Concomitant]
     Active Substance: PREDNISOLONE
     Route: 048
  20. PREDNISOLONE [Concomitant]
     Active Substance: PREDNISOLONE
     Route: 048
  21. PREDNISOLONE [Concomitant]
     Active Substance: PREDNISOLONE
     Route: 048
  22. PREDNISOLONE [Concomitant]
     Active Substance: PREDNISOLONE
     Route: 048
  23. PREDNISOLONE [Concomitant]
     Active Substance: PREDNISOLONE
     Route: 048
  24. PREDNISOLONE [Concomitant]
     Active Substance: PREDNISOLONE
     Route: 048
  25. PREDNISOLONE [Concomitant]
     Active Substance: PREDNISOLONE
     Route: 048
  26. PREDNISOLONE [Concomitant]
     Active Substance: PREDNISOLONE
     Route: 048
  27. PYRIDOSTIGMINE BROMIDE [Concomitant]
     Active Substance: PYRIDOSTIGMINE BROMIDE
     Indication: Myasthenia gravis
     Route: 048
  28. TACROLIMUS [Concomitant]
     Active Substance: TACROLIMUS
     Route: 048
  29. TACROLIMUS [Concomitant]
     Active Substance: TACROLIMUS
     Indication: Myasthenia gravis
     Route: 048

REACTIONS (3)
  - Hysterectomy [Unknown]
  - Myasthenia gravis crisis [Recovered/Resolved]
  - Antibody test abnormal [Recovered/Resolved]

NARRATIVE: CASE EVENT DATE: 20240123
